FAERS Safety Report 16059508 (Version 1)
Quarter: 2019Q1

REPORT INFORMATION
  Report Type: Spontaneous
  Country: US (occurrence: US)
  Receive Date: 20190311
  Receipt Date: 20190311
  Transmission Date: 20190418
  Serious: No
  Sender: FDA-Public Use
  Company Number: US-PFIZER INC-2018293752

PATIENT
  Age: 16 Year
  Sex: Female
  Weight: 41.73 kg

DRUGS (4)
  1. GENOTROPIN [Suspect]
     Active Substance: SOMATROPIN
     Indication: BLOOD GROWTH HORMONE
     Dosage: 2.8 MG, DAILY
     Dates: start: 20180319
  2. OXCARBAZEPINE. [Concomitant]
     Active Substance: OXCARBAZEPINE
     Indication: SEIZURE
     Dosage: 50 MG, UNK (50MG TAKES MORNING AND NIGHT)
  3. TYLENOL [Concomitant]
     Active Substance: ACETAMINOPHEN
     Indication: HEADACHE
     Dosage: SOMETIMES TAKES AS NEEDED
  4. GENOTROPIN [Suspect]
     Active Substance: SOMATROPIN
     Indication: HORMONE LEVEL ABNORMAL
     Dosage: 2.8 MG, UNK

REACTIONS (6)
  - Device issue [Unknown]
  - Acne [Unknown]
  - Abdominal discomfort [Unknown]
  - Incorrect dose administered by device [Unknown]
  - Vomiting [Unknown]
  - Eating disorder [Unknown]

NARRATIVE: CASE EVENT DATE: 201803
